FAERS Safety Report 8011577-1 (Version None)
Quarter: 2011Q4

REPORT INFORMATION
  Report Type: 
  Country: None (occurrence: None)
  Receive Date: 20111228
  Receipt Date: 20111219
  Transmission Date: 20120403
  Serious: Yes (Other)
  Sender: FDA-Public Use
  Company Number: US-JNJFOC-20111210074

PATIENT
  Sex: Female
  Weight: 78 kg

DRUGS (36)
  1. VELIPARIB [Suspect]
     Route: 048
     Dates: start: 20110512, end: 20110518
  2. TEMOZOLOMIDE [Suspect]
     Indication: OVARIAN CANCER
     Route: 048
     Dates: start: 20101111
  3. HYDROCORTISONE SODIUM SUCCINATE [Concomitant]
     Indication: PROPHYLAXIS
     Route: 065
     Dates: start: 20100901
  4. ONDANSETRON HYDROCHLORIDE [Concomitant]
     Indication: NAUSEA
     Route: 065
     Dates: start: 20100908, end: 20110810
  5. VELIPARIB [Suspect]
     Route: 048
     Dates: start: 20110309, end: 20110317
  6. VELIPARIB [Suspect]
     Route: 048
     Dates: start: 20110106, end: 20110112
  7. HYDROCHLOROTHIAZIDE [Concomitant]
     Indication: HYPERTENSION
     Route: 065
     Dates: start: 20080301, end: 20101215
  8. POTASSIUM [Concomitant]
     Indication: HYPOKALAEMIA
     Route: 065
     Dates: start: 20100701, end: 20101215
  9. ONDANSETRON HYDROCHLORIDE [Concomitant]
     Route: 065
     Dates: start: 20110810
  10. DIPHENHYDRAMINE HCL [Concomitant]
     Indication: HERPES ZOSTER
     Route: 065
     Dates: start: 20110907, end: 20111012
  11. CARBOPLATIN [Suspect]
     Route: 065
     Dates: start: 20071001
  12. VELIPARIB [Suspect]
     Indication: OVARIAN CANCER
     Route: 048
     Dates: start: 20110913, end: 20110919
  13. VELIPARIB [Suspect]
     Route: 048
     Dates: start: 20111016, end: 20111022
  14. VELIPARIB [Suspect]
     Route: 048
     Dates: start: 20110609, end: 20110615
  15. LISINOPRIL [Concomitant]
     Indication: HYPERTENSION
     Route: 065
     Dates: start: 20100723, end: 20101124
  16. PROCHLORPERAZINE EDISYLATE [Concomitant]
     Indication: PROPHYLAXIS OF NAUSEA AND VOMITING
     Route: 065
     Dates: start: 20100901
  17. MACROGOL [Concomitant]
     Indication: CONSTIPATION
     Route: 065
     Dates: start: 20101117
  18. DUO-C.V.P. [Concomitant]
     Indication: ROUTINE HEALTH MAINTENANCE
     Route: 065
     Dates: start: 20040101
  19. DOXORUBICIN HCL [Suspect]
     Indication: OVARIAN CANCER
     Route: 042
     Dates: start: 20100929, end: 20100929
  20. DOXORUBICIN HCL [Suspect]
     Route: 042
     Dates: start: 20100901, end: 20100901
  21. VELIPARIB [Suspect]
     Route: 048
     Dates: start: 20110210, end: 20110216
  22. VELIPARIB [Suspect]
     Route: 048
     Dates: start: 20110714, end: 20110720
  23. ONDANSETRON [Concomitant]
     Indication: NAUSEA
     Route: 065
     Dates: start: 20090901
  24. LORAZEPAM [Concomitant]
     Indication: PROPHYLAXIS OF NAUSEA AND VOMITING
     Route: 065
     Dates: start: 20100901
  25. ACYCLOVIR SODIUM [Concomitant]
     Indication: HERPES ZOSTER
     Route: 065
     Dates: start: 20110827
  26. PACLITAXEL [Suspect]
     Indication: CHEMOTHERAPY
     Route: 065
     Dates: start: 20071001
  27. DOCUSATE SODIUM [Concomitant]
     Indication: CONSTIPATION
     Route: 065
     Dates: start: 20070901
  28. VELIPARIB [Suspect]
     Route: 048
     Dates: start: 20110811, end: 20110817
  29. VELIPARIB [Suspect]
     Route: 048
     Dates: start: 20101111, end: 20101117
  30. VELIPARIB [Suspect]
     Route: 048
     Dates: start: 20110414, end: 20110420
  31. PANADEINE CO [Concomitant]
     Indication: PAIN
     Route: 065
     Dates: start: 20101020, end: 20110406
  32. CARBOPLATIN [Suspect]
     Indication: CHEMOTHERAPY
     Route: 065
     Dates: start: 20091001, end: 20100116
  33. VELIPARIB [Suspect]
     Route: 048
     Dates: start: 20101209, end: 20101212
  34. OXYCODONE HCL [Concomitant]
     Indication: PAIN
     Route: 065
     Dates: start: 20100501, end: 20101001
  35. A MULTIVITAMIN [Concomitant]
     Indication: ROUTINE HEALTH MAINTENANCE
     Route: 065
     Dates: start: 20040101
  36. DEXAMETHASONE ACETATE [Concomitant]
     Indication: ANAEMIA PROPHYLAXIS
     Route: 065
     Dates: start: 20100901

REACTIONS (1)
  - SQUAMOUS CELL CARCINOMA [None]
